FAERS Safety Report 18310133 (Version 2)
Quarter: 2020Q4

REPORT INFORMATION
  Report Type: Spontaneous
  Country: US (occurrence: US)
  Receive Date: 20200925
  Receipt Date: 20201013
  Transmission Date: 20210113
  Serious: Yes (Hospitalization)
  Sender: FDA-Public Use
  Company Number: US-ALVOGEN-2020-ALVOGEN-113259

PATIENT
  Age: 47 Year
  Sex: Female

DRUGS (1)
  1. GRALISE [Suspect]
     Active Substance: GABAPENTIN
     Indication: NEURALGIA
     Dosage: 1800 MG, QD
     Route: 048

REACTIONS (4)
  - Arterial repair [Recovering/Resolving]
  - Skin graft [Recovering/Resolving]
  - Product use in unapproved indication [Unknown]
  - Plastic surgery [Recovering/Resolving]

NARRATIVE: CASE EVENT DATE: 20190812
